FAERS Safety Report 4551496-6 (Version None)
Quarter: 2005Q1

REPORT INFORMATION
  Report Type: 
  Country: None (occurrence: None)
  Receive Date: 20050110
  Receipt Date: 20040816
  Transmission Date: 20050727
  Serious: Yes (Other)
  Sender: FDA-Public Use
  Company Number: 2004-05-2552

PATIENT
  Sex: Female

DRUGS (1)
  1. SUN BATH PROTECTIVE TANNING LOTION [Suspect]
     Indication: PROPHYLAXIS
     Dosage: TOPICAL
     Route: 061
     Dates: start: 20040427, end: 20040427

REACTIONS (8)
  - ANXIETY [None]
  - CAUSTIC INJURY [None]
  - FACE INJURY [None]
  - INJURY [None]
  - LIMB INJURY [None]
  - MENTAL DISORDER [None]
  - NECK INJURY [None]
  - PAIN [None]
